FAERS Safety Report 7887690 (Version 3)
Quarter: 2013Q4

REPORT INFORMATION
  Report Type: Spontaneous
  Country: US (occurrence: US)
  Receive Date: 20110406
  Receipt Date: 20131205
  Transmission Date: 20140711
  Serious: Yes (Hospitalization, Other)
  Sender: FDA-Public Use
  Company Number: US-PFIZER INC-2011074269

PATIENT
  Age: 55 Year
  Sex: Female

DRUGS (6)
  1. CHANTIX [Suspect]
     Dosage: UNK
     Dates: start: 20080101, end: 20080401
  2. CHANTIX [Suspect]
     Dosage: 1 MG, 2X/DAY
     Dates: start: 20080124, end: 20080319
  3. XANAX [Concomitant]
     Indication: ANXIETY
     Dosage: 1 MG, 1X/DAY (0.5MG 2 PILLS AT BEDTIME)
  4. PAXIL [Concomitant]
     Indication: DEPRESSION
     Dosage: 80 MG, DAILY, SINCE A YEAR
  5. NEURONTIN [Concomitant]
     Indication: NEURALGIA
     Dosage: 600 MG, 3X/DAY
  6. VICODIN [Concomitant]
     Indication: BACK PAIN
     Dosage: 1 DF, 2X/DAY
     Route: 048

REACTIONS (6)
  - Intentional overdose [Unknown]
  - Suicide attempt [Unknown]
  - Depression [Unknown]
  - Mood altered [Unknown]
  - Abnormal behaviour [Unknown]
  - Impaired driving ability [Unknown]
